FAERS Safety Report 13028412 (Version 3)
Quarter: 2017Q1

REPORT INFORMATION
  Report Type: Report from Study
  Country: None (occurrence: US)
  Receive Date: 20161214
  Receipt Date: 20170120
  Transmission Date: 20170428
  Serious: Yes (Other)
  Sender: FDA-Public Use
  Company Number: US-ABBVIE-16K-163-1805973-00

PATIENT
  Age: 69 Year
  Sex: Female
  Weight: 62.2 kg

DRUGS (2)
  1. HUMIRA [Suspect]
     Active Substance: ADALIMUMAB
     Indication: COLITIS ULCERATIVE
     Route: 058
     Dates: start: 201606, end: 201612
  2. HUMIRA [Suspect]
     Active Substance: ADALIMUMAB
     Indication: CROHN^S DISEASE

REACTIONS (11)
  - Injection site swelling [Recovering/Resolving]
  - Injection site pruritus [Recovering/Resolving]
  - Alopecia [Unknown]
  - Swelling [Unknown]
  - Anxiety [Unknown]
  - Hypotension [Unknown]
  - Abnormal behaviour [Unknown]
  - Injection site erythema [Recovering/Resolving]
  - Injection site hypersensitivity [Recovering/Resolving]
  - Pruritus [Unknown]
  - Pruritus genital [Unknown]

NARRATIVE: CASE EVENT DATE: 2016
